FAERS Safety Report 16633909 (Version 1)
Quarter: 2019Q3

REPORT INFORMATION
  Report Type: Spontaneous
  Country: US (occurrence: US)
  Receive Date: 20190725
  Receipt Date: 20190725
  Transmission Date: 20191004
  Serious: No
  Sender: FDA-Public Use
  Company Number: US-DERMIRA, INC.-US-2019DER000255

PATIENT

DRUGS (1)
  1. QBREXZA [Suspect]
     Active Substance: GLYCOPYRRONIUM TOSYLATE
     Indication: HYPERHIDROSIS
     Dosage: UNK UNK, QD
     Route: 061
     Dates: start: 201902, end: 20190411

REACTIONS (6)
  - Chills [Recovering/Resolving]
  - Vision blurred [Recovering/Resolving]
  - Saliva altered [Recovering/Resolving]
  - Dry mouth [Recovering/Resolving]
  - Feeling of body temperature change [Not Recovered/Not Resolved]
  - Application site reaction [Unknown]

NARRATIVE: CASE EVENT DATE: 2019
